FAERS Safety Report 4384642-8 (Version None)
Quarter: 2004Q2

REPORT INFORMATION
  Report Type: 
  Country: None (occurrence: None)
  Receive Date: 20040625
  Receipt Date: 20040121
  Transmission Date: 20050107
  Serious: No
  Sender: FDA-Public Use
  Company Number: US-BRISTOL-MYERS SQUIBB COMPANY-12483871

PATIENT
  Age: 55 Year
  Sex: Male
  Weight: 97 kg

DRUGS (5)
  1. SINEMET CR [Suspect]
     Indication: PARKINSON'S DISEASE
     Route: 048
     Dates: start: 20031201
  2. SINEMET [Suspect]
     Indication: PARKINSON'S DISEASE
     Route: 048
     Dates: start: 20031201
  3. LIPITOR [Concomitant]
  4. METFORMIN HCL [Concomitant]
  5. KLONOPIN [Concomitant]

REACTIONS (1)
  - BLEPHAROSPASM [None]
